FAERS Safety Report 4900808-X (Version None)
Quarter: 2006Q1

REPORT INFORMATION
  Report Type: 
  Country: None (occurrence: None)
  Receive Date: 20060113
  Receipt Date: 20050926
  Transmission Date: 20060701
  Serious: No
  Sender: FDA-Public Use
  Company Number: 2005SP002652

PATIENT
  Age: 70 Year
  Sex: Female
  Weight: 49.8957 kg

DRUGS (5)
  1. LUNESTA [Suspect]
     Indication: INSOMNIA
     Dosage: 3 MG; PRN; ORAL
     Route: 048
     Dates: start: 20050901, end: 20050101
  2. VITAMINS [Concomitant]
  3. ESTROGENS CONJUGATED [Concomitant]
  4. BAYER CHILDREN'S [Concomitant]
  5. ASPIRIN [Concomitant]

REACTIONS (4)
  - DRUG INEFFECTIVE [None]
  - DYSGEUSIA [None]
  - HEADACHE [None]
  - INITIAL INSOMNIA [None]
